FAERS Safety Report 23107733 (Version 1)
Quarter: 2023Q4

REPORT INFORMATION
  Report Type: Spontaneous
  Country: FR (occurrence: FR)
  Receive Date: 20231026
  Receipt Date: 20231026
  Transmission Date: 20240109
  Serious: Yes (Hospitalization, Other)
  Sender: FDA-Public Use
  Company Number: None

PATIENT
  Age: 36 Year
  Sex: Male

DRUGS (4)
  1. ZOLPIDEM TARTRATE [Suspect]
     Active Substance: ZOLPIDEM TARTRATE
     Dosage: UNK
     Route: 045
  2. ALCOHOL [Suspect]
     Active Substance: ALCOHOL
     Dosage: AT LEAST 5 BEERS OF 50 CL/D (BETWEEN 7 AND 11)
     Route: 048
  3. CANNABIS SATIVA SUBSP. INDICA TOP [Suspect]
     Active Substance: CANNABIS SATIVA SUBSP. INDICA TOP
     Dosage: AT LEAST 3 JOINTS PER DAY
     Route: 055
  4. BROMHEXINE HYDROCHLORIDE\GUAIFENESIN\MENTHOL\TERBUTALINE SULFATE [Suspect]
     Active Substance: BROMHEXINE HYDROCHLORIDE\GUAIFENESIN\MENTHOL\TERBUTALINE SULFATE
     Dosage: 10 TO 15 CIGARETTES PER DAY
     Route: 055

REACTIONS (10)
  - Cholelithiasis [Recovering/Resolving]
  - Vitamin D deficiency [Recovering/Resolving]
  - Pancreatitis acute [Recovering/Resolving]
  - Acute hepatitis C [Recovering/Resolving]
  - Starvation [Recovering/Resolving]
  - Vomiting [Recovered/Resolved]
  - Abdominal pain [Recovered/Resolved]
  - Nausea [Recovered/Resolved]
  - Drug abuse [Unknown]
  - Off label use [Unknown]

NARRATIVE: CASE EVENT DATE: 20220131
